FAERS Safety Report 8569014-4 (Version None)
Quarter: 2012Q3

REPORT INFORMATION
  Report Type: 
  Country: None (occurrence: None)
  Receive Date: 20120803
  Receipt Date: 20120425
  Transmission Date: 20120928
  Serious: No
  Sender: FDA-Public Use
  Company Number: US-ABBOTT-12P-163-0929056-00

PATIENT
  Sex: Male
  Weight: 136.2 kg

DRUGS (6)
  1. CRESTOR [Concomitant]
     Indication: PRODUCT USED FOR UNKNOWN INDICATION
  2. NIASPAN [Suspect]
     Indication: BLOOD CHOLESTEROL INCREASED
     Dosage: AT BED TIME
     Dates: start: 20100401
  3. GOUT MED [Concomitant]
     Indication: PRODUCT USED FOR UNKNOWN INDICATION
  4. NIASPAN [Suspect]
     Indication: BLOOD CHOLESTEROL DECREASED
  5. THYROID MED [Concomitant]
     Indication: PRODUCT USED FOR UNKNOWN INDICATION
  6. TRILIPIX [Concomitant]
     Indication: PRODUCT USED FOR UNKNOWN INDICATION

REACTIONS (4)
  - FLUSHING [None]
  - ERYTHEMA [None]
  - PRURITUS [None]
  - FEELING HOT [None]
